FAERS Safety Report 4813686-4 (Version None)
Quarter: 2005Q4

REPORT INFORMATION
  Report Type: 
  Country: None (occurrence: None)
  Receive Date: 20051028
  Receipt Date: 20050307
  Transmission Date: 20060501
  Serious: No
  Sender: FDA-Public Use
  Company Number: US-GLAXOSMITHKLINE-A0548821A

PATIENT
  Age: 75 Year
  Sex: Female
  Weight: 75.9 kg

DRUGS (12)
  1. ADVAIR DISKUS 100/50 [Suspect]
     Indication: WHEEZING
     Route: 055
     Dates: start: 20050127, end: 20050224
  2. SINGULAIR [Concomitant]
  3. ALLEGRA [Concomitant]
  4. ALBUTEROL [Concomitant]
  5. NASONEX [Concomitant]
  6. HUMIBID [Concomitant]
  7. ATENOLOL [Concomitant]
  8. ASPIRIN [Concomitant]
  9. PREVACID [Concomitant]
  10. XALATAN [Concomitant]
  11. MULTI-VITAMIN [Concomitant]
  12. LIPITOR [Concomitant]

REACTIONS (2)
  - COUGH [None]
  - MUSCLE SPASMS [None]
